FAERS Safety Report 9753156 (Version 2)
Quarter: 2013Q4

REPORT INFORMATION
  Report Type: Spontaneous
  Country: US (occurrence: US)
  Receive Date: 20131213
  Receipt Date: 20131213
  Transmission Date: 20140711
  Serious: No
  Sender: FDA-Public Use
  Company Number: US-GILEAD-2010-0026290

PATIENT
  Sex: Male
  Weight: 106.14 kg

DRUGS (17)
  1. LETAIRIS [Suspect]
     Indication: PULMONARY ARTERIAL HYPERTENSION
     Route: 048
     Dates: start: 20090910
  2. WARFARIN SODIUM [Concomitant]
  3. FUROSEMIDE [Concomitant]
  4. AMLODIPINE [Concomitant]
  5. METOPROLOL [Concomitant]
  6. ENALAPRIL [Concomitant]
  7. LACTULOSE [Concomitant]
  8. SUDAFED 12 HOUR [Concomitant]
  9. METFORMIN [Concomitant]
  10. OXYCODONE [Concomitant]
  11. NOVOLOG [Concomitant]
  12. POTASSIUM [Concomitant]
  13. HYDROXYZINE [Concomitant]
  14. MAGNESIUM [Concomitant]
  15. METHADONE [Concomitant]
  16. PREVACID [Concomitant]
  17. MILK OF MAGNESIA [Concomitant]

REACTIONS (2)
  - Migraine with aura [Recovered/Resolved]
  - Sinus congestion [Unknown]
